FAERS Safety Report 7692781-9 (Version None)
Quarter: 2011Q3

REPORT INFORMATION
  Report Type: 
  Country: None (occurrence: None)
  Receive Date: 20110815
  Receipt Date: 20110801
  Transmission Date: 20111222
  Serious: Yes (Other)
  Sender: FDA-Public Use
  Company Number: DSJ-2011-09819

PATIENT
  Age: 72 Year
  Sex: Female

DRUGS (8)
  1. WARFARIN SODIUM [Concomitant]
  2. ERYTHROCYTES [Concomitant]
  3. VINPOCETINE [Concomitant]
  4. BENICAR [Suspect]
     Indication: HYPERTENSION
     Dosage: 20 MG (20 MG, 1 IN 1 D), PER ORAL; 40 MG (20 MG, 2 IN 1 D), PER ORAL
     Route: 048
     Dates: start: 20100101, end: 20110508
  5. BENICAR [Suspect]
     Indication: HYPERTENSION
     Dosage: 20 MG (20 MG, 1 IN 1 D), PER ORAL; 40 MG (20 MG, 2 IN 1 D), PER ORAL
     Route: 048
     Dates: start: 20110509
  6. HUMAN INSULIN (INSULIN HUMAN, INSULIN HUMAN INJECTION, ISOPHANE) [Concomitant]
  7. SERTRALINE HYDROCHLORIDE [Concomitant]
  8. IRON III [Concomitant]

REACTIONS (5)
  - ISCHAEMIA [None]
  - HEADACHE [None]
  - NAUSEA [None]
  - BLOOD PRESSURE INCREASED [None]
  - DRUG INEFFECTIVE [None]
